FAERS Safety Report 18218977 (Version 1)
Quarter: 2020Q3

REPORT INFORMATION
  Report Type: Spontaneous
  Country: US (occurrence: US)
  Receive Date: 20200901
  Receipt Date: 20200901
  Transmission Date: 20201103
  Serious: No
  Sender: FDA-Public Use
  Company Number: US-SA-2020SA229165

PATIENT

DRUGS (1)
  1. PLAVIX [Suspect]
     Active Substance: CLOPIDOGREL BISULFATE
     Dosage: UNK

REACTIONS (4)
  - Dizziness [Recovering/Resolving]
  - Presyncope [Recovering/Resolving]
  - Balance disorder [Recovering/Resolving]
  - Cardiovascular symptom [Recovering/Resolving]

NARRATIVE: CASE EVENT DATE: 2019
